FAERS Safety Report 23692871 (Version 2)
Quarter: 2024Q2

REPORT INFORMATION
  Report Type: Spontaneous
  Country: US (occurrence: US)
  Receive Date: 20240401
  Receipt Date: 20240619
  Transmission Date: 20240716
  Serious: No
  Sender: FDA-Public Use
  Company Number: US-SA-SAC20240321001273

PATIENT
  Age: 2 Year
  Sex: Female

DRUGS (1)
  1. DUPIXENT [Suspect]
     Active Substance: DUPILUMAB
     Indication: Dermatitis atopic
     Dosage: 200 MG, Q4W
     Route: 058
     Dates: start: 20240219

REACTIONS (9)
  - Sleep disorder [Unknown]
  - Irritability [Unknown]
  - Mood altered [Unknown]
  - Disturbance in attention [Unknown]
  - Eczema [Unknown]
  - Pruritus [Unknown]
  - Skin haemorrhage [Unknown]
  - Scratch [Unknown]
  - Product dose omission issue [Unknown]

NARRATIVE: CASE EVENT DATE: 20240101
